FAERS Safety Report 12924521 (Version 1)
Quarter: 2016Q4

REPORT INFORMATION
  Report Type: Report from Study
  Country: CA (occurrence: CA)
  Receive Date: 20161109
  Receipt Date: 20161109
  Transmission Date: 20170207
  Serious: Yes (Other)
  Sender: FDA-Public Use
  Company Number: CA-AMGEN-CANSL2016152620

PATIENT
  Age: 60 Year
  Sex: Female

DRUGS (8)
  1. DEXILANT [Concomitant]
     Active Substance: DEXLANSOPRAZOLE
     Dosage: 60 MG, QD
  2. CLONAZEPAM. [Concomitant]
     Active Substance: CLONAZEPAM
     Dosage: 1 MG, BID
  3. WELLBUTRIN [Concomitant]
     Active Substance: BUPROPION HYDROCHLORIDE
     Dosage: 150 MG, BID
  4. TOPAMAX [Concomitant]
     Active Substance: TOPIRAMATE
     Dosage: 100 MG, QHS
  5. CALCIUM AND VIT D [Concomitant]
     Active Substance: CALCIUM\VITAMIN D
     Dosage: UNK
  6. PRISTIQ EXTENDED-RELEASE [Concomitant]
     Active Substance: DESVENLAFAXINE SUCCINATE
     Dosage: 100 MG, QD
  7. PROLIA [Suspect]
     Active Substance: DENOSUMAB
     Indication: PRODUCT USED FOR UNKNOWN INDICATION
     Dosage: UNK
     Route: 065
     Dates: start: 20150529
  8. FOLIC ACID. [Concomitant]
     Active Substance: FOLIC ACID
     Dosage: 5 MG, UNK, 6 DAYS PER WEEK

REACTIONS (1)
  - Psoriatic arthropathy [Unknown]
